FAERS Safety Report 5321273-7 (Version None)
Quarter: 2007Q2

REPORT INFORMATION
  Report Type: 
  Country: None (occurrence: None)
  Receive Date: 20070504
  Receipt Date: 20070425
  Transmission Date: 20071010
  Serious: Yes (Hospitalization)
  Sender: FDA-Public Use
  Company Number: 2007-01178

PATIENT
  Age: 68 Year
  Sex: Male
  Weight: 53.5 kg

DRUGS (2)
  1. VELCADE [Suspect]
     Indication: MULTIPLE MYELOMA
     Dosage: 1.80 MG, UNK, UNK
     Dates: start: 20061101
  2. GABAPENTIN [Concomitant]

REACTIONS (5)
  - DECREASED APPETITE [None]
  - NEUROPATHY PERIPHERAL [None]
  - OESOPHAGEAL ACHALASIA [None]
  - OESOPHAGITIS [None]
  - WEIGHT DECREASED [None]
